FAERS Safety Report 4397040-8 (Version None)
Quarter: 2004Q3

REPORT INFORMATION
  Report Type: 
  Country: None (occurrence: None)
  Receive Date: 20040708
  Receipt Date: 20040625
  Transmission Date: 20050211
  Serious: Yes (Life-Threatening, Hospitalization)
  Sender: FDA-Public Use
  Company Number: 2004031286

PATIENT
  Age: 40 Year
  Sex: Male

DRUGS (1)
  1. VIAGRA [Suspect]
     Indication: ERECTILE DYSFUNCTION
     Dosage: 50 MG (50 MG, AS NEEDED), ORAL
     Route: 048
     Dates: start: 20040505, end: 20040505

REACTIONS (3)
  - HEADACHE [None]
  - PITUITARY HAEMORRHAGE [None]
  - PYREXIA [None]
